FAERS Safety Report 5427327-9 (Version None)
Quarter: 2007Q3

REPORT INFORMATION
  Report Type: 
  Country: None (occurrence: None)
  Receive Date: 20070828
  Receipt Date: 20070821
  Transmission Date: 20080115
  Serious: Yes (Other)
  Sender: FDA-Public Use
  Company Number: FR-AMGEN-US240317

PATIENT
  Age: 28 Year
  Sex: Male

DRUGS (3)
  1. ENBREL [Suspect]
     Indication: ANKYLOSING SPONDYLITIS
     Dosage: LYOPHILIZED (DOSE AND FREQUENCY UNSPECIFIED)
     Route: 058
     Dates: start: 20070111, end: 20070401
  2. ENBREL [Suspect]
     Dosage: PREFILLED SYRINGE (DOSE AND FREQUENCY UNSPECIFIED)
     Route: 058
     Dates: start: 20070410, end: 20070524
  3. ENBREL [Suspect]
     Dosage: PREFILLED SYRINGE (DOSE AND FREQUENCY UNSPECIFIED)
     Route: 058
     Dates: start: 20070701

REACTIONS (4)
  - BLOOD BICARBONATE INCREASED [None]
  - CARDIAC DISORDER [None]
  - ENTEROCOLITIS HAEMORRHAGIC [None]
  - HYPOKALAEMIA [None]
